FAERS Safety Report 9675243 (Version 4)
Quarter: 2014Q1

REPORT INFORMATION
  Report Type: Spontaneous
  Country: US (occurrence: US)
  Receive Date: 20131107
  Receipt Date: 20140312
  Transmission Date: 20141002
  Serious: Yes (Other)
  Sender: FDA-Public Use
  Company Number: US-PFIZER INC-2013315554

PATIENT
  Age: 51 Year
  Sex: Female

DRUGS (4)
  1. CEFDINIR [Suspect]
     Dosage: 300 MG, UNK
  2. CEFUROXIME [Suspect]
     Dosage: UNK
  3. CLINDAMYCIN HCL [Suspect]
     Dosage: 150 MG, UNK
  4. AUGMENTIN [Suspect]
     Dosage: UNK

REACTIONS (1)
  - Colitis [Unknown]
